FAERS Safety Report 6269542-0 (Version None)
Quarter: 2009Q3

REPORT INFORMATION
  Report Type: 
  Country: None (occurrence: None)
  Receive Date: 20090714
  Receipt Date: 20090622
  Transmission Date: 20100115
  Serious: Yes (Other)
  Sender: FDA-Public Use
  Company Number: SPV1-2009-01424

PATIENT
  Age: 59 Year
  Sex: Male

DRUGS (6)
  1. FOSRENOL [Suspect]
     Indication: HYPERPHOSPHATAEMIA
     Dosage: ORAL
     Route: 048
     Dates: start: 20090608, end: 20090620
  2. FIRSTCIN          (CEFOZOPRAN HYDROCHLORIDE) [Concomitant]
  3. AMLODINE (AMLODIPINE) [Concomitant]
  4. LASIX [Concomitant]
  5. CALCIUM LACTATE    (CALCIUM LACTATE) [Concomitant]
  6. RABEPRAZOLE SODIUM [Concomitant]

REACTIONS (2)
  - LIVER DISORDER [None]
  - RASH [None]
